FAERS Safety Report 9405017 (Version 1)
Quarter: 2013Q3

REPORT INFORMATION
  Report Type: Spontaneous
  Country: US (occurrence: US)
  Receive Date: 20130717
  Receipt Date: 20130717
  Transmission Date: 20140515
  Serious: Yes (Other)
  Sender: FDA-Public Use
  Company Number: US-BRISTOL-MYERS SQUIBB COMPANY-18798660

PATIENT
  Age: 79 Year
  Sex: Male
  Weight: 90.7 kg

DRUGS (10)
  1. YERVOY [Suspect]
     Indication: MALIGNANT MELANOMA
     Dosage: LAST DOSE: 19MAR2013
     Dates: start: 20130108, end: 20130319
  2. SIMVASTATIN [Concomitant]
  3. ALLOPURINOL [Concomitant]
  4. CLOPIDOGREL BISULFATE [Concomitant]
  5. MIRALAX [Concomitant]
  6. METAMUCIL [Concomitant]
  7. ALIGN [Concomitant]
  8. EQUALACTIN [Concomitant]
  9. CELEBREX [Concomitant]
  10. TRAMADOL [Concomitant]

REACTIONS (6)
  - Malignant neoplasm progression [Unknown]
  - Arthritis [Unknown]
  - Musculoskeletal pain [Not Recovered/Not Resolved]
  - Muscular weakness [Unknown]
  - Rash pruritic [Recovering/Resolving]
  - Tooth infection [Unknown]
